FAERS Safety Report 8484305-3 (Version None)
Quarter: 2012Q2

REPORT INFORMATION
  Report Type: 
  Country: None (occurrence: None)
  Receive Date: 20120625
  Receipt Date: 20120620
  Transmission Date: 20120825
  Serious: Yes (Hospitalization, Other)
  Sender: FDA-Public Use
  Company Number: 12-391

PATIENT
  Age: 64 Year
  Sex: Female
  Weight: 102.0593 kg

DRUGS (8)
  1. LYRICA (PREGABALIN), UNK [Concomitant]
  2. CYMBALTA (DULOXETINE HYDROCHLORIDE), UNK [Concomitant]
  3. ELAVIL (AMITRIPTYLINE HYDROCHLORIDE), UNK [Concomitant]
  4. ATARAX (HYDROXYZINE), UNK [Concomitant]
  5. OXYCONTIN (OXYCODONE HYDROCHLORIDE, UNK [Concomitant]
  6. PERCOCET (OXYCOCET), UNK [Concomitant]
  7. ALEVE [Suspect]
     Indication: ARTHRITIS
     Dosage: 2 / PRN/ ORAL
     Route: 048
     Dates: start: 20111101, end: 20111223
  8. ADVAIR HFA [Concomitant]

REACTIONS (7)
  - BLOOD PRESSURE MANAGEMENT [None]
  - VOMITING [None]
  - GENERALISED ERYTHEMA [None]
  - DYSPNOEA [None]
  - INCOHERENT [None]
  - SWELLING [None]
  - RENAL FAILURE [None]
